FAERS Safety Report 7597981-4 (Version None)
Quarter: 2011Q3

REPORT INFORMATION
  Report Type: 
  Country: None (occurrence: None)
  Receive Date: 20110708
  Receipt Date: 20110630
  Transmission Date: 20111222
  Serious: Yes (Death, Other)
  Sender: FDA-Public Use
  Company Number: PHHY2011CL57182

PATIENT
  Age: 38 Year
  Sex: Female

DRUGS (1)
  1. FLUTAMIDE [Suspect]
     Indication: ALOPECIA
     Dosage: UNK

REACTIONS (2)
  - HEPATITIS FULMINANT [None]
  - POST PROCEDURAL COMPLICATION [None]
